FAERS Safety Report 7362989-0 (Version None)
Quarter: 2011Q1

REPORT INFORMATION
  Report Type: 
  Country: None (occurrence: None)
  Receive Date: 20110321
  Receipt Date: 20110317
  Transmission Date: 20110831
  Serious: No
  Sender: FDA-Public Use
  Company Number: US-PFIZER INC-2011032811

PATIENT
  Sex: Male

DRUGS (2)
  1. ADVIL LIQUI-GELS [Suspect]
     Indication: NASAL CONGESTION
     Dosage: 200 MG, DAILY
     Route: 048
     Dates: start: 20110211, end: 20110213
  2. ADVIL LIQUI-GELS [Suspect]
     Indication: DYSPNOEA

REACTIONS (1)
  - DRUG INEFFECTIVE [None]
